FAERS Safety Report 8245126-X (Version None)
Quarter: 2012Q1

REPORT INFORMATION
  Report Type: 
  Country: None (occurrence: None)
  Receive Date: 20120329
  Receipt Date: 20120322
  Transmission Date: 20120608
  Serious: Yes (Hospitalization)
  Sender: FDA-Public Use
  Company Number: HR-GLAXOSMITHKLINE-B0792071A

PATIENT
  Age: 69 Year

DRUGS (4)
  1. FEMARA [Concomitant]
     Indication: BREAST CANCER
     Dosage: 2.5MG PER DAY
     Route: 048
     Dates: start: 20090101
  2. XELODA [Suspect]
     Indication: BREAST CANCER
     Dosage: 3000MG PER DAY
     Route: 048
     Dates: start: 20111219, end: 20120129
  3. LAPATINIB [Suspect]
     Indication: BREAST CANCER
     Dosage: 1250MG PER DAY
     Route: 048
     Dates: start: 20111219, end: 20120120
  4. LISINOPRIL AND HYDROCHLOROTHIAZIDE [Concomitant]
     Indication: HYPERTENSION
     Dosage: 1UD PER DAY
     Route: 048

REACTIONS (8)
  - DECREASED APPETITE [None]
  - ASTHENIA [None]
  - VOMITING [None]
  - SKIN EXFOLIATION [None]
  - SKIN FISSURES [None]
  - NAUSEA [None]
  - DIARRHOEA [None]
  - MALAISE [None]
